FAERS Safety Report 7311627-1 (Version None)
Quarter: 2011Q1

REPORT INFORMATION
  Report Type: 
  Country: None (occurrence: None)
  Receive Date: 20110215
  Receipt Date: 20110215
  Transmission Date: 20110831
  Serious: Yes (Life-Threatening, Hospitalization)
  Sender: FDA-Public Use
  Company Number: None

PATIENT
  Age: 80 Year
  Sex: Female
  Weight: 74.8435 kg

DRUGS (2)
  1. MULTAQ [Suspect]
     Indication: ATRIAL FIBRILLATION
     Dosage: 400MG TWICE DAILY BY MOUTH
     Route: 048
     Dates: start: 20110201
  2. MULTAQ [Suspect]
     Indication: ATRIAL FIBRILLATION
     Dosage: 400MG TWICE DAILY BY MOUTH
     Route: 048
     Dates: start: 20100501

REACTIONS (2)
  - DEEP VEIN THROMBOSIS [None]
  - BRADYCARDIA [None]
